FAERS Safety Report 8072915-7 (Version None)
Quarter: 2012Q1

REPORT INFORMATION
  Report Type: 
  Country: None (occurrence: None)
  Receive Date: 20120126
  Receipt Date: 20120120
  Transmission Date: 20120608
  Serious: Yes (Other)
  Sender: FDA-Public Use
  Company Number: BR-PFIZER INC-2012017756

PATIENT
  Age: 45 Year
  Sex: Male

DRUGS (7)
  1. CYMBALTA [Concomitant]
  2. METFORMIN HYDROCHLORIDE [Concomitant]
     Dosage: UNK
     Dates: start: 20070101
  3. ATORVASTATIN CALCIUM [Suspect]
     Indication: BLOOD CHOLESTEROL
     Dosage: 0.5 (UNSPECIFIED DOSAGE), ALTERNATE DAY
     Route: 048
  4. ZOLOFT [Concomitant]
     Indication: DEPRESSION
     Dosage: UNK
     Route: 048
     Dates: start: 19960101
  5. PARACETAMOL [Concomitant]
  6. ATORVASTATIN [Concomitant]
  7. ETNA [Concomitant]
     Dosage: UNK
     Dates: start: 20120120

REACTIONS (3)
  - PAIN [None]
  - BLOOD CHOLESTEROL ABNORMAL [None]
  - INTERVERTEBRAL DISC PROTRUSION [None]
